FAERS Safety Report 6628969-5 (Version None)
Quarter: 2010Q1

REPORT INFORMATION
  Report Type: 
  Country: None (occurrence: None)
  Receive Date: 20100311
  Receipt Date: 20090807
  Transmission Date: 20100710
  Serious: No
  Sender: FDA-Public Use
  Company Number: US-BIOGENIDEC-2009BI024778

PATIENT
  Sex: Female

DRUGS (4)
  1. AVONEX [Suspect]
     Indication: MULTIPLE SCLEROSIS
     Route: 030
     Dates: start: 19980101
  2. AVONEX [Suspect]
     Route: 030
  3. VITAMINS (NOS) [Concomitant]
     Indication: HYPOAESTHESIA
  4. VITAMINS (NOS) [Concomitant]

REACTIONS (5)
  - ABDOMINAL PAIN [None]
  - HYPOAESTHESIA [None]
  - OVARIAN PROLAPSE [None]
  - PAIN IN EXTREMITY [None]
  - VERTIGO [None]
